FAERS Safety Report 5710433-9 (Version None)
Quarter: 2008Q2

REPORT INFORMATION
  Report Type: 
  Country: None (occurrence: None)
  Receive Date: 20080418
  Receipt Date: 20080411
  Transmission Date: 20081010
  Serious: Yes (Other)
  Sender: FDA-Public Use
  Company Number: US-PFIZER INC-2008032754

PATIENT
  Sex: Male
  Weight: 84.09 kg

DRUGS (2)
  1. CELEBREX [Suspect]
     Indication: ARTHRITIS
  2. COSAMIN DS [Concomitant]

REACTIONS (5)
  - BALANCE DISORDER [None]
  - DISORIENTATION [None]
  - FEELING ABNORMAL [None]
  - NAUSEA [None]
  - STOMACH DISCOMFORT [None]
